FAERS Safety Report 7170788-8 (Version None)
Quarter: 2010Q4

REPORT INFORMATION
  Report Type: 
  Country: None (occurrence: None)
  Receive Date: 20101217
  Receipt Date: 20101208
  Transmission Date: 20110411
  Serious: Yes (Hospitalization, Other)
  Sender: FDA-Public Use
  Company Number: CA-JNJFOC-20101202681

PATIENT
  Sex: Female
  Weight: 52 kg

DRUGS (1)
  1. REMICADE [Suspect]
     Indication: CROHN'S DISEASE
     Route: 042

REACTIONS (9)
  - CONVULSION [None]
  - COORDINATION ABNORMAL [None]
  - FEELING ABNORMAL [None]
  - LOSS OF CONSCIOUSNESS [None]
  - MUSCULAR WEAKNESS [None]
  - PERIPHERAL COLDNESS [None]
  - SENSORY DISTURBANCE [None]
  - SYNCOPE [None]
  - UNRESPONSIVE TO STIMULI [None]
